FAERS Safety Report 23986499 (Version 4)
Quarter: 2024Q4

REPORT INFORMATION
  Report Type: Spontaneous
  Country: US (occurrence: US)
  Receive Date: 20240618
  Receipt Date: 20241025
  Transmission Date: 20250115
  Serious: No
  Sender: PFIZER
  Company Number: US-PFIZER INC-202400190472

PATIENT
  Age: 2 Year
  Sex: Female
  Weight: 14.512 kg

DRUGS (3)
  1. GENOTROPIN [Suspect]
     Active Substance: SOMATROPIN
     Indication: Prader-Willi syndrome
     Dosage: 0.2 MG, 1X/DAY (AT NIGHT, IN HER THIGH OR STOMACH)
  2. GENOTROPIN [Suspect]
     Active Substance: SOMATROPIN
     Indication: Hypotonia
     Dosage: 0.2 MG, 1X/DAY (AT NIGHT, IN HER THIGH OR STOMACH; NDC: 0013-2626-81)
  3. SULFAMETHOXAZOLE AND TRIMETHOPRIM [Concomitant]
     Active Substance: SULFAMETHOXAZOLE\TRIMETHOPRIM
     Indication: Urinary tract disorder
     Dosage: 2.5 MG, 1X/DAY
     Route: 048

REACTIONS (2)
  - Expired device used [Unknown]
  - Drug dose omission by device [Unknown]

NARRATIVE: CASE EVENT DATE: 20240607
